FAERS Safety Report 7124947-0 (Version None)
Quarter: 2010Q4

REPORT INFORMATION
  Report Type: 
  Country: None (occurrence: None)
  Receive Date: 20101112
  Receipt Date: 20101027
  Transmission Date: 20110411
  Serious: Yes (Hospitalization)
  Sender: FDA-Public Use
  Company Number: TCI2010A04443

PATIENT
  Age: 80 Year
  Sex: Male

DRUGS (2)
  1. PREVPAC [Suspect]
     Indication: HELICOBACTER INFECTION
     Dosage: PER ORAL
     Route: 048
  2. GLYBURIDE [Suspect]
     Dosage: PER ORAL
     Route: 048

REACTIONS (1)
  - HYPOGLYCAEMIC COMA [None]
